FAERS Safety Report 17201069 (Version 1)
Quarter: 2019Q4

REPORT INFORMATION
  Report Type: Report from Study
  Country: IT (occurrence: IT)
  Receive Date: 20191226
  Receipt Date: 20191226
  Transmission Date: 20200122
  Serious: Yes (Other)
  Sender: FDA-Public Use
  Company Number: PHHY2018IT053982

PATIENT
  Sex: Male

DRUGS (1)
  1. COSENTYX [Suspect]
     Active Substance: SECUKINUMAB
     Indication: PSORIATIC ARTHROPATHY
     Dosage: 300 MG, (EVERY 28 DAYS)
     Route: 065
     Dates: start: 20180408

REACTIONS (5)
  - Arthritis infective [Unknown]
  - Pyrexia [Unknown]
  - Fatigue [Unknown]
  - Pain in extremity [Unknown]
  - Bone pain [Unknown]
